FAERS Safety Report 24933554 (Version 1)
Quarter: 2025Q1

REPORT INFORMATION
  Report Type: Report from Study
  Country: US (occurrence: US)
  Receive Date: 20250206
  Receipt Date: 20250206
  Transmission Date: 20250408
  Serious: Yes (Other)
  Sender: EXELIXIS
  Company Number: US-EXELIXIS-CABO-23071684

PATIENT
  Sex: Male

DRUGS (7)
  1. CABOMETYX [Suspect]
     Active Substance: CABOZANTINIB S-MALATE
     Indication: Renal cell carcinoma
     Dosage: 40 MG, QD
     Dates: start: 20231028
  2. NIVOLUMAB [Suspect]
     Active Substance: NIVOLUMAB
     Indication: Renal cell carcinoma
     Dosage: UNK UNK, Q4WEEKS
     Dates: start: 20231028
  3. COLACE [Concomitant]
     Active Substance: DOCUSATE SODIUM
  4. IRON [Concomitant]
     Active Substance: IRON
  5. PRAVASTATIN [Concomitant]
     Active Substance: PRAVASTATIN
  6. TYLENOL [Concomitant]
     Active Substance: ACETAMINOPHEN
  7. VITAMIN D3 [Concomitant]
     Active Substance: CHOLECALCIFEROL

REACTIONS (6)
  - Malignant neoplasm progression [Not Recovered/Not Resolved]
  - Thyroid hormones increased [Not Recovered/Not Resolved]
  - Blood pressure increased [Recovering/Resolving]
  - Fatigue [Not Recovered/Not Resolved]
  - Diarrhoea [Not Recovered/Not Resolved]
  - Feeling cold [Not Recovered/Not Resolved]
